FAERS Safety Report 24108027 (Version 2)
Quarter: 2024Q3

REPORT INFORMATION
  Report Type: Spontaneous
  Country: US (occurrence: US)
  Receive Date: 20240718
  Receipt Date: 20240723
  Transmission Date: 20241016
  Serious: Yes (Hospitalization)
  Sender: JOHNSON AND JOHNSON
  Company Number: US-JNJFOC-20240741609

PATIENT
  Sex: Female
  Weight: 4.6 kg

DRUGS (3)
  1. TRACLEER [Suspect]
     Active Substance: BOSENTAN
     Indication: Pulmonary arterial hypertension
     Dosage: VIA NG TUBE
     Route: 050
  2. TRACLEER [Suspect]
     Active Substance: BOSENTAN
     Route: 048
  3. SILDENAFIL CITRATE [Concomitant]
     Active Substance: SILDENAFIL CITRATE

REACTIONS (3)
  - Hospitalisation [Unknown]
  - Off label use [Unknown]
  - Flushing [Unknown]
